FAERS Safety Report 26169180 (Version 1)
Quarter: 2025Q4

REPORT INFORMATION
  Report Type: Spontaneous
  Country: US (occurrence: None)
  Receive Date: 20251217
  Receipt Date: 20251217
  Transmission Date: 20260118
  Serious: Yes (Hospitalization)
  Sender: FDA-CTU
  Company Number: None

PATIENT
  Age: 51 Year
  Sex: Male
  Weight: 89.9 kg

DRUGS (2)
  1. XELODA [Suspect]
     Active Substance: CAPECITABINE
     Dates: end: 20251213
  2. ELOXATIN [Suspect]
     Active Substance: OXALIPLATIN
     Dates: end: 20251201

REACTIONS (4)
  - Pulmonary embolism [None]
  - Pleural effusion [None]
  - Pulmonary infarction [None]
  - Drug ineffective [None]

NARRATIVE: CASE EVENT DATE: 20251213
